FAERS Safety Report 15259005 (Version 1)
Quarter: 2018Q3

REPORT INFORMATION
  Report Type: Spontaneous
  Country: US (occurrence: US)
  Receive Date: 20180809
  Receipt Date: 20180809
  Transmission Date: 20181010
  Serious: No
  Sender: FDA-Public Use
  Company Number: US-JNJFOC-20180733520

PATIENT
  Sex: Male
  Weight: 58.97 kg

DRUGS (2)
  1. IMODIUM MULTI?SYMPTOM RELIEF [Suspect]
     Active Substance: DIMETHICONE\LOPERAMIDE HYDROCHLORIDE
     Indication: FLATULENCE
     Dosage: FREQUENCY: 1 CAPLET 1X NIGHTLY
     Route: 048
     Dates: start: 20180601, end: 20180724
  2. IMODIUM MULTI?SYMPTOM RELIEF [Suspect]
     Active Substance: DIMETHICONE\LOPERAMIDE HYDROCHLORIDE
     Indication: DIARRHOEA
     Dosage: FREQUENCY: 1 CAPLET 1X NIGHTLY
     Route: 048
     Dates: start: 20180601, end: 20180724

REACTIONS (1)
  - Drug administration error [Unknown]
